FAERS Safety Report 4579925-2 (Version None)
Quarter: 2005Q1

REPORT INFORMATION
  Report Type: 
  Country: None (occurrence: None)
  Receive Date: 20050210
  Receipt Date: 20050126
  Transmission Date: 20050727
  Serious: Yes (Death)
  Sender: FDA-Public Use
  Company Number: 2004AL000706

PATIENT
  Age: 65 Year
  Sex: Female

DRUGS (4)
  1. OXAZEPAM [Suspect]
     Dosage: PO
     Route: 048
  2. MIRTAZAPINE [Suspect]
     Dosage: PO
  3. ETHANOL [Suspect]
     Dosage: PO
  4. ZOLPIDEM TARTRATE [Suspect]
     Dosage: PO
     Route: 048

REACTIONS (16)
  - ACIDOSIS [None]
  - ANOXIC ENCEPHALOPATHY [None]
  - ATRIAL FIBRILLATION [None]
  - BLOOD ALCOHOL INCREASED [None]
  - BODY TEMPERATURE DECREASED [None]
  - BRAIN DEATH [None]
  - CARDIO-RESPIRATORY ARREST [None]
  - COMA [None]
  - COMPLETED SUICIDE [None]
  - ELECTROCARDIOGRAM QT CORRECTED INTERVAL PROLONGED [None]
  - ELECTROCARDIOGRAM ST SEGMENT ABNORMAL [None]
  - HYPOTENSION [None]
  - MULTIPLE DRUG OVERDOSE [None]
  - MYDRIASIS [None]
  - PERIORBITAL OEDEMA [None]
  - THERAPY NON-RESPONDER [None]
